FAERS Safety Report 12292242 (Version 2)
Quarter: 2016Q2

REPORT INFORMATION
  Report Type: Spontaneous
  Country: US (occurrence: US)
  Receive Date: 20160421
  Receipt Date: 20160614
  Transmission Date: 20160815
  Serious: Yes (Other)
  Sender: FDA-Public Use
  Company Number: US-AMGEN-USASP2016049199

PATIENT
  Age: 44 Year
  Sex: Female
  Weight: 104.31 kg

DRUGS (3)
  1. REPATHA [Suspect]
     Active Substance: EVOLOCUMAB
     Indication: TYPE IIA HYPERLIPIDAEMIA
     Dosage: 140 MG/ML, Q2WK
     Route: 058
     Dates: start: 20160217
  2. FOLIC ACID. [Concomitant]
     Active Substance: FOLIC ACID
     Indication: TYPE IIA HYPERLIPIDAEMIA
     Dosage: 800 MUG, QD
     Route: 048
     Dates: start: 20150129
  3. ZETIA [Concomitant]
     Active Substance: EZETIMIBE
     Indication: TYPE IIA HYPERLIPIDAEMIA
     Dosage: 10 MG, QD
     Route: 048
     Dates: start: 20150512

REACTIONS (4)
  - Feeling abnormal [Unknown]
  - Syncope [Unknown]
  - Influenza like illness [Not Recovered/Not Resolved]
  - Presyncope [Unknown]
